FAERS Safety Report 15612503 (Version 1)
Quarter: 2018Q4

REPORT INFORMATION
  Report Type: Spontaneous
  Country: US (occurrence: US)
  Receive Date: 20181107
  Receipt Date: 20181107
  Transmission Date: 20190205
  Serious: No
  Sender: FDA-Public Use
  Company Number: None

PATIENT
  Age: 53 Year
  Sex: Male
  Weight: 86.18 kg

DRUGS (2)
  1. METOLAZONE. [Suspect]
     Active Substance: METOLAZONE
     Indication: HYPERTENSION
     Dosage: ?          OTHER DOSE:2.5MG;?
     Route: 048
     Dates: start: 20180831, end: 20181002
  2. FUROSEMIDE. [Suspect]
     Active Substance: FUROSEMIDE
     Indication: HYPERTENSION
     Route: 048
     Dates: start: 20150130, end: 20181002

REACTIONS (2)
  - Laboratory test abnormal [None]
  - Hypokalaemia [None]

NARRATIVE: CASE EVENT DATE: 20181002
